FAERS Safety Report 5417849-9 (Version None)
Quarter: 2007Q3

REPORT INFORMATION
  Report Type: 
  Country: None (occurrence: None)
  Receive Date: 20070817
  Receipt Date: 20070808
  Transmission Date: 20080115
  Serious: Yes (Hospitalization, Other)
  Sender: FDA-Public Use
  Company Number: US-JNJFOC-20070606116

PATIENT
  Sex: Female
  Weight: 54.43 kg

DRUGS (12)
  1. PREZISTA [Suspect]
     Route: 048
  2. PREZISTA [Suspect]
     Indication: HIV INFECTION
     Dosage: PERMANENT STOP
     Route: 048
  3. NORVIR [Suspect]
     Indication: HIV INFECTION
     Route: 048
  4. TRUVADA [Concomitant]
     Indication: HIV INFECTION
     Route: 048
  5. SULFAMETHOXAZOLE TM [Concomitant]
     Indication: ANTIFUNGAL PROPHYLAXIS
     Route: 048
  6. SERTRALINE HYDROCHLORIDE [Concomitant]
     Indication: DEPRESSION
     Route: 048
  7. MARINOL [Concomitant]
     Indication: ANOREXIA
     Route: 048
  8. LOTRIMIN [Concomitant]
     Indication: RASH
     Route: 061
  9. HYDROCORTISONE [Concomitant]
     Indication: RASH
     Route: 061
  10. DIFLUCAN [Concomitant]
     Indication: ANTIFUNGAL PROPHYLAXIS
     Route: 048
  11. AMBIEN [Concomitant]
     Indication: INSOMNIA
     Dosage: TAKEN AT BEDTIME
     Route: 048
  12. ACYCLOVIR [Concomitant]
     Indication: HERPES VIRUS INFECTION
     Route: 048

REACTIONS (2)
  - MENINGITIS ASEPTIC [None]
  - RASH [None]
